FAERS Safety Report 8551709-X (Version None)
Quarter: 2012Q3

REPORT INFORMATION
  Report Type: 
  Country: None (occurrence: None)
  Receive Date: 20120723
  Receipt Date: 20120723
  Transmission Date: 20120928
  Serious: Yes (Death, Other)
  Sender: FDA-Public Use
  Company Number: None

PATIENT
  Age: 43 Year
  Sex: Male
  Weight: 83.9154 kg

DRUGS (2)
  1. CYMBALTA [Suspect]
     Indication: DEPRESSION
     Dosage: 90 MG ONCE/DAY PO
     Route: 048
     Dates: start: 20100310, end: 20120319
  2. CYMBALTA [Suspect]

REACTIONS (3)
  - ANXIETY [None]
  - COMPLETED SUICIDE [None]
  - WEIGHT DECREASED [None]
